FAERS Safety Report 12729272 (Version 1)
Quarter: 2016Q3

REPORT INFORMATION
  Report Type: Spontaneous
  Country: US (occurrence: US)
  Receive Date: 20160908
  Receipt Date: 20160908
  Transmission Date: 20161109
  Serious: No
  Sender: FDA-Public Use
  Company Number: None

PATIENT
  Age: 13 Year
  Sex: Female
  Weight: 47.7 kg

DRUGS (3)
  1. ABILIFY [Concomitant]
     Active Substance: ARIPIPRAZOLE
  2. CLONIDIN [Concomitant]
     Active Substance: CLONIDINE
  3. CONCERTA [Suspect]
     Active Substance: METHYLPHENIDATE HYDROCHLORIDE
     Dosage: OTHER
     Route: 048
     Dates: start: 20160811, end: 20160812

REACTIONS (2)
  - Abdominal pain upper [None]
  - Headache [None]

NARRATIVE: CASE EVENT DATE: 20160811
